FAERS Safety Report 8604253-5 (Version None)
Quarter: 2012Q3

REPORT INFORMATION
  Report Type: 
  Country: None (occurrence: None)
  Receive Date: 20120820
  Receipt Date: 20120816
  Transmission Date: 20120928
  Serious: Yes (Hospitalization)
  Sender: FDA-Public Use
  Company Number: GB-BAYER-2012-074411

PATIENT
  Age: 25 Year
  Sex: Male

DRUGS (1)
  1. CIPROFLOXACIN [Suspect]
     Indication: TYPHOID FEVER

REACTIONS (2)
  - OSTEOMYELITIS CHRONIC [None]
  - PATHOGEN RESISTANCE [None]
